FAERS Safety Report 19304409 (Version 1)
Quarter: 2021Q2

REPORT INFORMATION
  Report Type: Spontaneous
  Country: US (occurrence: US)
  Receive Date: 20210525
  Receipt Date: 20210525
  Transmission Date: 20210717
  Serious: No
  Sender: FDA-Public Use
  Company Number: US-SA-2021SA169628

PATIENT
  Age: 63 Year
  Sex: Female

DRUGS (8)
  1. VITAMIN B12 [VITAMIN B12 NOS] [Concomitant]
     Active Substance: CYANOCOBALAMIN
  2. OILATUM [PARAFFIN] [Concomitant]
  3. DUPIXENT [Suspect]
     Active Substance: DUPILUMAB
     Indication: DERMATITIS ATOPIC
     Dosage: 300 MG, QOW
     Route: 058
     Dates: start: 20200801
  4. ZINC GLUCONATE [Concomitant]
     Active Substance: ZINC GLUCONATE
  5. VITAMIN C [Concomitant]
     Active Substance: ASCORBIC ACID
  6. VITAMIN D NOS [Concomitant]
     Active Substance: VITAMIN D NOS
  7. ZOLPIDEM [Concomitant]
     Active Substance: ZOLPIDEM TARTRATE
  8. PROBIOTICS NOS [Concomitant]
     Active Substance: PROBIOTICS NOS

REACTIONS (2)
  - Sleep disorder [Unknown]
  - Product dose omission issue [Unknown]
